FAERS Safety Report 10144130 (Version 1)
Quarter: 2014Q2

REPORT INFORMATION
  Report Type: Spontaneous
  Country: GB (occurrence: GB)
  Receive Date: 20140430
  Receipt Date: 20140430
  Transmission Date: 20141212
  Serious: Yes (Congenital Anomaly)
  Sender: FDA-Public Use
  Company Number: GB-WATSON-2014-08417

PATIENT
  Sex: 0

DRUGS (1)
  1. CITALOPRAM (UNKNOWN) [Suspect]
     Indication: DEPRESSION
     Dosage: 20 MG, UNKNOWN
     Route: 064

REACTIONS (3)
  - Genitalia external ambiguous [Unknown]
  - Anal atresia [Unknown]
  - Exposure during pregnancy [Unknown]
